FAERS Safety Report 5173744-4 (Version None)
Quarter: 2006Q4

REPORT INFORMATION
  Report Type: 
  Country: None (occurrence: None)
  Receive Date: 20061206
  Receipt Date: 20061128
  Transmission Date: 20070319
  Serious: Yes (Disabling, Other)
  Sender: FDA-Public Use
  Company Number: 2006147070

PATIENT
  Age: 57 Year
  Sex: Female

DRUGS (1)
  1. DEPO-MEDROL [Suspect]
     Indication: SCIATICA
     Dosage: 80 MG (5 MG)

REACTIONS (1)
  - DISABILITY [None]
